FAERS Safety Report 9413541 (Version 1)
Quarter: 2013Q2

REPORT INFORMATION
  Report Type: Spontaneous
  Country: US (occurrence: None)
  Receive Date: 20130606
  Receipt Date: 20130606
  Transmission Date: 20140414
  Serious: Yes (Hospitalization)
  Sender: FDA-Public Use
  Company Number: 2013-0892

PATIENT
  Age: 82 Year
  Sex: Male

DRUGS (1)
  1. KYPROLIS (CARFILZOMIB) (INJECTION FOR INFUSION) (CARFILZOMIB) [Suspect]
     Indication: PLASMA CELL MYELOMA
     Dosage: 12MG (42MG, 2 IN 1 WK)
     Route: 042
     Dates: start: 20130304

REACTIONS (5)
  - Cardiac failure congestive [None]
  - Renal failure acute [None]
  - Hypokalaemia [None]
  - Somnolence [None]
  - Heart rate increased [None]
